FAERS Safety Report 4402741-9 (Version None)
Quarter: 2004Q3

REPORT INFORMATION
  Report Type: 
  Country: None (occurrence: None)
  Receive Date: 20040721
  Receipt Date: 20040223
  Transmission Date: 20050211
  Serious: No
  Sender: FDA-Public Use
  Company Number: US-BRISTOL-MYERS SQUIBB COMPANY-12514451

PATIENT
  Age: 52 Year
  Sex: Female

DRUGS (1)
  1. ESTRACE [Suspect]
     Dosage: DURATION OF THERAPY:  ^YEARS^

REACTIONS (2)
  - DRUG INEFFECTIVE [None]
  - FEELING ABNORMAL [None]
